FAERS Safety Report 18897847 (Version 1)
Quarter: 2021Q1

REPORT INFORMATION
  Report Type: Spontaneous
  Country: BE (occurrence: BE)
  Receive Date: 20210216
  Receipt Date: 20210216
  Transmission Date: 20210420
  Serious: Yes (Other)
  Sender: FDA-Public Use
  Company Number: BE-TEVA-2021-BE-1880764

PATIENT
  Sex: Female

DRUGS (1)
  1. AJOVY [Suspect]
     Active Substance: FREMANEZUMAB-VFRM
     Dosage: 225 MG/1.5 ML; THE SECOND INJECTION WAS PLANNED ON 10?FEB?2021.
     Route: 065
     Dates: start: 20210113

REACTIONS (1)
  - Tumour marker increased [Unknown]

NARRATIVE: CASE EVENT DATE: 20210203
